FAERS Safety Report 20573938 (Version 7)
Quarter: 2022Q4

REPORT INFORMATION
  Report Type: Spontaneous
  Country: US (occurrence: US)
  Receive Date: 20220309
  Receipt Date: 20221220
  Transmission Date: 20230113
  Serious: No
  Sender: FDA-Public Use
  Company Number: US-PFIZER INC-2020233140

PATIENT
  Age: 72 Year
  Sex: Female

DRUGS (3)
  1. XELJANZ XR [Suspect]
     Active Substance: TOFACITINIB CITRATE
     Dosage: 11 MG (1 TABLET), ALTERNATE DAY (11MG ONE TABLET ON EVEN DAYS)
     Route: 048
  2. XELJANZ XR [Suspect]
     Active Substance: TOFACITINIB CITRATE
     Dosage: 22 MG (2 TABLETS OF 11 MG), ALTERNATE DAY (TWO TABLETS ON ODD DAYS)
     Route: 048
  3. XELJANZ XR [Suspect]
     Active Substance: TOFACITINIB CITRATE
     Dosage: 11 MG, 1X/DAY
     Route: 048

REACTIONS (4)
  - Hypoacusis [Unknown]
  - Fatigue [Unknown]
  - Off label use [Unknown]
  - Product dispensing error [Unknown]
